FAERS Safety Report 15346169 (Version 1)
Quarter: 2018Q3

REPORT INFORMATION
  Report Type: Spontaneous
  Country: DE (occurrence: DE)
  Receive Date: 20180904
  Receipt Date: 20180904
  Transmission Date: 20181010
  Serious: Yes (Hospitalization)
  Sender: FDA-Public Use
  Company Number: DE-SUN PHARMACEUTICAL INDUSTRIES LTD-2018R1-183410

PATIENT
  Age: 67 Year
  Sex: Female

DRUGS (17)
  1. ZINK (NEM) [Concomitant]
     Indication: PRODUCT USED FOR UNKNOWN INDICATION
     Dosage: 20 MG, DAILY
     Route: 048
     Dates: start: 20161116, end: 20161205
  2. MIRTAZAPIN [Suspect]
     Active Substance: MIRTAZAPINE
     Dosage: 45 MG, DAILY
     Route: 048
     Dates: start: 20161020, end: 20161219
  3. MIRTAZAPIN [Suspect]
     Active Substance: MIRTAZAPINE
     Dosage: 45 ? 0 MG
     Route: 048
     Dates: start: 20161220, end: 20161226
  4. PREGABALIN. [Suspect]
     Active Substance: PREGABALIN
     Dosage: 150 MG, DAILY
     Route: 048
     Dates: start: 20161122, end: 20161130
  5. PROSPAN [Concomitant]
     Active Substance: IVY EXTRACT
     Indication: PRODUCT USED FOR UNKNOWN INDICATION
     Dosage: 15 ML, DAILY
     Route: 048
     Dates: start: 20161117, end: 20161129
  6. MIRTAZAPIN [Suspect]
     Active Substance: MIRTAZAPINE
     Indication: PRODUCT USED FOR UNKNOWN INDICATION
     Dosage: 30 MG, DAILY
     Route: 048
     Dates: start: 20170920, end: 20171019
  7. MIRTAZAPIN [Suspect]
     Active Substance: MIRTAZAPINE
     Dosage: 15 MG, DAILY
     Route: 048
     Dates: start: 20160926
  8. PREGABALIN. [Suspect]
     Active Substance: PREGABALIN
     Dosage: 100 MG, DAILY
     Route: 048
     Dates: start: 20161111, end: 20161117
  9. PREGABALIN. [Suspect]
     Active Substance: PREGABALIN
     Dosage: 50 MG, DAILY
     Route: 048
     Dates: start: 20161110
  10. PREGABALIN. [Suspect]
     Active Substance: PREGABALIN
     Dosage: 100 MG, DAILY
     Route: 048
     Dates: start: 20161205
  11. PREGABALIN. [Suspect]
     Active Substance: PREGABALIN
     Dosage: 125 MG, DAILY
     Route: 048
     Dates: start: 20161201, end: 20161204
  12. PANTOPRAZOL [Concomitant]
     Active Substance: PANTOPRAZOLE SODIUM
     Indication: PRODUCT USED FOR UNKNOWN INDICATION
     Dosage: 20 MG, DAILY
     Route: 048
     Dates: start: 20161116
  13. AMLODIPINE [Concomitant]
     Active Substance: AMLODIPINE BESYLATE
     Indication: PRODUCT USED FOR UNKNOWN INDICATION
     Dosage: 10 MG, DAILY, EINNAHME SEIT MONATEN
     Route: 048
  14. PREGABALIN. [Suspect]
     Active Substance: PREGABALIN
     Indication: PRODUCT USED FOR UNKNOWN INDICATION
     Dosage: 125 MG, DAILY
     Route: 048
     Dates: start: 20161118, end: 20161121
  15. PREGABALIN. [Suspect]
     Active Substance: PREGABALIN
     Dosage: 50 MG, DAILY
     Route: 048
     Dates: start: 20161206
  16. PREGABALIN. [Suspect]
     Active Substance: PREGABALIN
     Dosage: 25 MG, DAILY
     Route: 048
     Dates: start: 20161207
  17. QUETIAPINE. [Suspect]
     Active Substance: QUETIAPINE
     Indication: PRODUCT USED FOR UNKNOWN INDICATION
     Dosage: 75 MG, DAILY
     Route: 048
     Dates: start: 20161108

REACTIONS (1)
  - Oedema peripheral [Recovered/Resolved]

NARRATIVE: CASE EVENT DATE: 20161128
